FAERS Safety Report 5623436-X (Version None)
Quarter: 2008Q1

REPORT INFORMATION
  Report Type: 
  Country: None (occurrence: None)
  Receive Date: 20080207
  Receipt Date: 20080129
  Transmission Date: 20080703
  Serious: Yes (Other)
  Sender: FDA-Public Use
  Company Number: 08-000166

PATIENT
  Age: 31 Year
  Sex: Female

DRUGS (1)
  1. LOESTRIN 24 FE [Suspect]
     Dosage: 20/1000 UG, QD, ORAL
     Route: 048

REACTIONS (8)
  - HEADACHE [None]
  - HYPOAESTHESIA [None]
  - NAUSEA [None]
  - PARAESTHESIA [None]
  - POLLAKIURIA [None]
  - VAGINAL HAEMORRHAGE [None]
  - VOMITING [None]
  - VULVOVAGINAL DISCOMFORT [None]
